FAERS Safety Report 14020065 (Version 3)
Quarter: 2018Q4

REPORT INFORMATION
  Report Type: Spontaneous
  Country: JP (occurrence: JP)
  Receive Date: 20170928
  Receipt Date: 20181219
  Transmission Date: 20190204
  Serious: Yes (Hospitalization, Other)
  Sender: FDA-Public Use
  Company Number: JP-BRISTOL-MYERS SQUIBB COMPANY-BMS-2017-051324

PATIENT
  Age: 77 Year
  Sex: Female
  Weight: 60.6 kg

DRUGS (2)
  1. YERVOY [Suspect]
     Active Substance: IPILIMUMAB
     Indication: MALIGNANT MELANOMA STAGE III
     Dosage: 200 MG, QMO
     Route: 041
     Dates: start: 20170331, end: 20170601
  2. OPDIVO [Suspect]
     Active Substance: NIVOLUMAB
     Indication: MALIGNANT MELANOMA STAGE III
     Dosage: UNK
     Route: 041
     Dates: start: 20171016, end: 20171030

REACTIONS (16)
  - Anaemia [Unknown]
  - Vomiting [Unknown]
  - Abdominal pain upper [Recovering/Resolving]
  - Urinary tract infection [Unknown]
  - Pyrexia [Recovered/Resolved]
  - Skin disorder [Recovered/Resolved]
  - Malignant neoplasm progression [Unknown]
  - C-reactive protein increased [Not Recovered/Not Resolved]
  - Nocturia [Unknown]
  - Tachycardia [Recovering/Resolving]
  - Inflammation [Unknown]
  - Loss of consciousness [Recovered/Resolved]
  - Drug-induced liver injury [Recovered/Resolved]
  - Hypotension [Unknown]
  - Malaise [Recovered/Resolved]
  - Leukoderma [Not Recovered/Not Resolved]

NARRATIVE: CASE EVENT DATE: 20170421
